FAERS Safety Report 13091001 (Version 1)
Quarter: 2017Q1

REPORT INFORMATION
  Report Type: Report from Study
  Country: CH (occurrence: CH)
  Receive Date: 20170106
  Receipt Date: 20170106
  Transmission Date: 20170428
  Serious: Yes (Death)
  Sender: FDA-Public Use
  Company Number: CH-ACCORD-047089

PATIENT

DRUGS (9)
  1. ETOPOSIDE. [Suspect]
     Active Substance: ETOPOSIDE
     Indication: LYMPHOMA
     Dosage: 150 MG/M2  ADMINISTERED EVERY 12 H AS A 30 MIN INFUSION EACH IN 500 ML 0.9% NACL.
  2. GRANULOCYTE COLONY STIMULATING [Concomitant]
     Active Substance: GRANULOCYTE COLONY-STIMULATING FACTOR NOS
     Dosage: 5 MCG/KG B.W. STARTING AT DAY +6 AFTER ASCT UNTIL NEUTROPHILS EXCEEDED 0.5 G/L FOR 3 CONSECUTIVE DAY
  3. ACICLOVIR [Concomitant]
     Active Substance: ACYCLOVIR
     Indication: ANTIVIRAL TREATMENT
     Dosage: 500 MG TWICE DAILY
     Route: 048
  4. FLUCONAZOLE. [Concomitant]
     Active Substance: FLUCONAZOLE
     Indication: ANTIFUNGAL PROPHYLAXIS
     Dosage: 400 MG ONCE WEEKLY
     Route: 048
  5. BENDAMUSTINE [Suspect]
     Active Substance: BENDAMUSTINE
     Indication: LYMPHOMA
     Dosage: 200 MG/M2 GIVEN AS SINGLE 2 H INFUSION IN 500 ML 0.9% NACL SUPPORTED BY FORCED HYDRATION ON DAY 6,7
  6. SULFAMETHOXAZOLE/TRIMETHOPRIM [Concomitant]
     Indication: ANTIFUNGAL PROPHYLAXIS
     Dosage: 800/160 MG THREE TIMES PER WEEK
     Route: 048
  7. ALLOPURINOL. [Concomitant]
     Active Substance: ALLOPURINOL
     Dosage: 300 MG DAILY
  8. MELPHALAN [Suspect]
     Active Substance: MELPHALAN
     Indication: LYMPHOMA
     Dosage: 140 MG/M2 GIVEN AS SINGLE 1H INFUSION IN 500 ML 0.9% NACL SUPPORTED BY FORCED HYDRATION ON DAY 1
  9. CYTARABINE/CYTARABINE HYDROCHLORIDE/CYTARABINE OCFOSFATE [Suspect]
     Active Substance: CYTARABINE
     Indication: LYMPHOMA
     Dosage: 200 MG/M2 ADMINISTERED EVERY 12 H AS A 30 MIN INFUSION EACH IN 500 ML 0.9% NACL

REACTIONS (2)
  - Septic shock [Fatal]
  - Multiple organ dysfunction syndrome [Fatal]
